FAERS Safety Report 18149992 (Version 2)
Quarter: 2020Q3

REPORT INFORMATION
  Report Type: Report from Study
  Country: US (occurrence: US)
  Receive Date: 20200814
  Receipt Date: 20200930
  Transmission Date: 20201105
  Serious: Yes (Death, Hospitalization)
  Sender: FDA-Public Use
  Company Number: US-ROCHE-2654877

PATIENT
  Age: 66 Year
  Sex: Female
  Weight: 61.8 kg

DRUGS (2)
  1. BEVACIZUMAB. [Suspect]
     Active Substance: BEVACIZUMAB
     Indication: OVARIAN CANCER
     Dosage: MOST RECENT DOSE OF BEVACIZUMAB ON 29/JUN/2020
     Route: 042
     Dates: start: 20200124
  2. ANETUMAB RAVTANSINE. [Suspect]
     Active Substance: ANETUMAB RAVTANSINE
     Indication: OVARIAN CANCER
     Dosage: MOST RECENT DOSE OF ANETUMAB RAVTANSINE ON 29/JUN/2020
     Route: 065
     Dates: start: 20200124

REACTIONS (3)
  - Small intestinal obstruction [Recovered/Resolved]
  - Disease progression [Fatal]
  - Acidosis [Recovered/Resolved]

NARRATIVE: CASE EVENT DATE: 20200707
